FAERS Safety Report 25683784 (Version 1)
Quarter: 2025Q3

REPORT INFORMATION
  Report Type: Report from Study
  Country: EU (occurrence: EU)
  Receive Date: 20250814
  Receipt Date: 20250814
  Transmission Date: 20251020
  Serious: Yes (Hospitalization, Other)
  Sender: SERVIER
  Company Number: EU-SERVIER-S25003062

PATIENT

DRUGS (3)
  1. VORASIDENIB [Suspect]
     Active Substance: VORASIDENIB
     Indication: Astrocytoma, low grade
     Route: 048
     Dates: start: 20241117, end: 20250227
  2. VORASIDENIB [Suspect]
     Active Substance: VORASIDENIB
     Dosage: 40 MG, QD
     Route: 048
     Dates: start: 20250303, end: 20250514
  3. VORASIDENIB [Suspect]
     Active Substance: VORASIDENIB
     Route: 048
     Dates: start: 20250527

REACTIONS (7)
  - Pneumonia [Recovered/Resolved]
  - Epilepsy [Unknown]
  - Seizure [Recovered/Resolved]
  - Urinary tract infection [Recovered/Resolved]
  - Nausea [Recovered/Resolved]
  - Weight decreased [Recovered/Resolved]
  - Constipation [Not Recovered/Not Resolved]

NARRATIVE: CASE EVENT DATE: 20241101
